FAERS Safety Report 20170552 (Version 3)
Quarter: 2022Q3

REPORT INFORMATION
  Report Type: Spontaneous
  Country: US (occurrence: None)
  Receive Date: 20211210
  Receipt Date: 20220727
  Transmission Date: 20221027
  Serious: Yes (Other)
  Sender: FDA-Public Use
  Company Number: 2021A854994

PATIENT
  Age: 45 Year
  Sex: Male
  Weight: 84.8 kg

DRUGS (39)
  1. PRILOSEC [Suspect]
     Active Substance: OMEPRAZOLE MAGNESIUM
     Indication: Gastrooesophageal reflux disease
     Route: 048
     Dates: start: 2011, end: 2016
  2. PRILOSEC [Suspect]
     Active Substance: OMEPRAZOLE MAGNESIUM
     Indication: Gastrooesophageal reflux disease
     Route: 048
     Dates: start: 2011, end: 2016
  3. PRILOSEC [Suspect]
     Active Substance: OMEPRAZOLE MAGNESIUM
     Indication: Gastrooesophageal reflux disease
     Dosage: GENERIC
     Route: 065
  4. PRILOSEC [Suspect]
     Active Substance: OMEPRAZOLE MAGNESIUM
     Indication: Gastrooesophageal reflux disease
     Dosage: GENERIC
     Route: 065
  5. PROTONIX [Suspect]
     Active Substance: PANTOPRAZOLE SODIUM
     Indication: Gastrooesophageal reflux disease
     Route: 065
     Dates: end: 2016
  6. PROTONIX [Suspect]
     Active Substance: PANTOPRAZOLE SODIUM
     Indication: Gastrooesophageal reflux disease
     Route: 065
     Dates: end: 2016
  7. PROTONIX [Suspect]
     Active Substance: PANTOPRAZOLE SODIUM
     Indication: Gastrooesophageal reflux disease
     Dosage: GENERIC
     Route: 065
  8. PROTONIX [Suspect]
     Active Substance: PANTOPRAZOLE SODIUM
     Indication: Gastrooesophageal reflux disease
     Dosage: GENERIC
     Route: 065
  9. ATORVASTATIN [Concomitant]
     Active Substance: ATORVASTATIN
     Indication: Hyperlipidaemia
  10. AMOXICILLIN [Concomitant]
     Active Substance: AMOXICILLIN
     Indication: Infection
  11. FUROSEMIDE [Concomitant]
     Active Substance: FUROSEMIDE
     Indication: Hypertension
  12. HYDRALAZINE [Concomitant]
     Active Substance: HYDRALAZINE HYDROCHLORIDE
     Indication: Hypertension
  13. HYDROCHLOROTHIAZIDE [Concomitant]
     Active Substance: HYDROCHLOROTHIAZIDE
     Indication: Hypertension
  14. LOSARTAN [Concomitant]
     Active Substance: LOSARTAN
     Indication: Hypertension
  15. FAMOTIDINE [Concomitant]
     Active Substance: FAMOTIDINE
  16. COREG [Concomitant]
     Active Substance: CARVEDILOL
  17. LASIX [Concomitant]
     Active Substance: FUROSEMIDE
  18. COUMADIN [Concomitant]
     Active Substance: WARFARIN SODIUM
  19. CALCIUM ACETATE [Concomitant]
     Active Substance: CALCIUM ACETATE
  20. COZAAR [Concomitant]
     Active Substance: LOSARTAN POTASSIUM
  21. TELMISARTAN [Concomitant]
     Active Substance: TELMISARTAN
  22. CLONIDINE [Concomitant]
     Active Substance: CLONIDINE
  23. DOXYCYCLINE [Concomitant]
     Active Substance: DOXYCYCLINE
  24. POTASSIUM CHLORIDE [Concomitant]
     Active Substance: POTASSIUM CHLORIDE
  25. WARFARIN [Concomitant]
     Active Substance: WARFARIN
  26. NIMBEX [Concomitant]
     Active Substance: CISATRACURIUM BESYLATE
  27. ONDANSETRON [Concomitant]
     Active Substance: ONDANSETRON
  28. TRAZODONE [Concomitant]
     Active Substance: TRAZODONE HYDROCHLORIDE
  29. DEXAMETHASONE [Concomitant]
     Active Substance: DEXAMETHASONE
  30. PHENYLEPHRINE [Concomitant]
     Active Substance: PHENYLEPHRINE HYDROCHLORIDE
  31. SODIUM CHLORIDE [Concomitant]
     Active Substance: SODIUM CHLORIDE
  32. ACETAMINOPHEN [Concomitant]
     Active Substance: ACETAMINOPHEN
  33. LACTULOSE [Concomitant]
     Active Substance: LACTULOSE
  34. AMLODIPINE [Concomitant]
     Active Substance: AMLODIPINE BESYLATE
  35. CALCIUM CARBONATE [Concomitant]
     Active Substance: CALCIUM CARBONATE
  36. ALPRAZOLAM [Concomitant]
     Active Substance: ALPRAZOLAM
  37. ALBUTEROL SULFATE [Concomitant]
     Active Substance: ALBUTEROL SULFATE
  38. BACLOFEN [Concomitant]
     Active Substance: BACLOFEN
  39. PRIMAQUINE [Concomitant]
     Active Substance: PRIMAQUINE

REACTIONS (4)
  - Acute kidney injury [Not Recovered/Not Resolved]
  - Chronic kidney disease [Not Recovered/Not Resolved]
  - End stage renal disease [Not Recovered/Not Resolved]
  - Renal failure [Unknown]

NARRATIVE: CASE EVENT DATE: 20150101
